FAERS Safety Report 5022306-8 (Version None)
Quarter: 2006Q2

REPORT INFORMATION
  Report Type: 
  Country: None (occurrence: None)
  Receive Date: 20060609
  Receipt Date: 20060601
  Transmission Date: 20061013
  Serious: Yes (Hospitalization)
  Sender: FDA-Public Use
  Company Number: PH-GLAXOSMITHKLINE-B0426766A

PATIENT
  Age: 2 Year
  Sex: Male

DRUGS (1)
  1. VENTOLIN [Suspect]
     Route: 055
     Dates: start: 20060531, end: 20060531

REACTIONS (3)
  - EYE INFLAMMATION [None]
  - OCULAR HYPERAEMIA [None]
  - PHARMACEUTICAL PRODUCT COMPLAINT [None]
